FAERS Safety Report 17811630 (Version 1)
Quarter: 2020Q2

REPORT INFORMATION
  Report Type: Spontaneous
  Country: ES (occurrence: ES)
  Receive Date: 20200521
  Receipt Date: 20200521
  Transmission Date: 20200714
  Serious: Yes (Hospitalization)
  Sender: FDA-Public Use
  Company Number: ES-ACCORD-182555

PATIENT
  Age: 83 Year
  Sex: Male

DRUGS (7)
  1. LORAZEPAM. [Concomitant]
     Active Substance: LORAZEPAM
     Indication: INSOMNIA
     Dosage: STRENGTH: 1 MG; 50 TABLETS
     Route: 048
     Dates: start: 20151210
  2. FUROSEMIDE. [Suspect]
     Active Substance: FUROSEMIDE
     Indication: CARDIAC FAILURE
     Dosage: STRENGTH: 40 MG; 30 TABLETS
     Route: 048
     Dates: start: 20161129
  3. BISOPROLOL [Concomitant]
     Active Substance: BISOPROLOL
     Indication: ATRIAL FIBRILLATION
     Dosage: STRENGTH: 1.25 MG; 25 TABLETS
     Route: 048
     Dates: start: 20190417
  4. SINTROM [Concomitant]
     Active Substance: ACENOCOUMAROL
     Indication: AORTIC VALVE STENOSIS
     Dosage: STRENGTH: 4 MG; 20 TABLETS
     Route: 048
     Dates: start: 20180903
  5. ATROVENT [Concomitant]
     Active Substance: IPRATROPIUM BROMIDE
     Indication: BRONCHITIS
     Dosage: STRENGTH: 25 MCG; PRESSURIZED CONTAINER, 1 INHALER OF 200 DOSES
     Route: 055
     Dates: start: 20180103
  6. LYRICA [Concomitant]
     Active Substance: PREGABALIN
     Indication: MUSCLE SPASMS
     Dosage: STRENGTH: 75 MG;  56 CAPSULES
     Route: 048
     Dates: start: 20131107
  7. PANTOPRAZOLE [Concomitant]
     Active Substance: PANTOPRAZOLE
     Indication: CHEST PAIN
     Dosage: STRENGTH: 40 MG; 28 TABLETS
     Route: 048
     Dates: start: 20141120

REACTIONS (1)
  - Hypokalaemia [Recovered/Resolved]

NARRATIVE: CASE EVENT DATE: 20190902
